FAERS Safety Report 20801066 (Version 1)
Quarter: 2022Q2

REPORT INFORMATION
  Report Type: Spontaneous
  Country: US (occurrence: None)
  Receive Date: 20220509
  Receipt Date: 20220509
  Transmission Date: 20220721
  Serious: Yes (Other)
  Sender: FDA-Public Use
  Company Number: US-ROCHE-3087811

PATIENT
  Age: 60 Year
  Sex: Male
  Weight: 172.52 kg

DRUGS (1)
  1. VABYSMO [Suspect]
     Active Substance: FARICIMAB-SVOA
     Indication: Product used for unknown indication
     Route: 050
     Dates: start: 20220427

REACTIONS (6)
  - Pain [Not Recovered/Not Resolved]
  - Lacrimation increased [Not Recovered/Not Resolved]
  - Photophobia [Not Recovered/Not Resolved]
  - Vision blurred [Not Recovered/Not Resolved]
  - Eye oedema [Unknown]
  - Chemical burns of eye [Unknown]

NARRATIVE: CASE EVENT DATE: 20220427
